FAERS Safety Report 20861945 (Version 2)
Quarter: 2022Q2

REPORT INFORMATION
  Report Type: Report from Study
  Country: US (occurrence: US)
  Receive Date: 20220523
  Receipt Date: 20220531
  Transmission Date: 20220720
  Serious: Yes (Hospitalization)
  Sender: FDA-Public Use
  Company Number: US-GLAXOSMITHKLINE-US2022GSK078681

PATIENT

DRUGS (17)
  1. DOSTARLIMAB [Suspect]
     Active Substance: DOSTARLIMAB
     Indication: HIV infection
     Dosage: 500 MG, Q3 WEEKS
     Route: 042
     Dates: start: 20220207, end: 20220207
  2. DOSTARLIMAB [Suspect]
     Active Substance: DOSTARLIMAB
     Dosage: 500 MG, Q3 WEEKS
     Route: 042
     Dates: start: 20220411, end: 20220411
  3. CARBOPLATIN [Suspect]
     Active Substance: CARBOPLATIN
     Indication: HIV infection
     Dosage: 190 MG, WEEKLY
     Route: 042
     Dates: start: 20220207, end: 20220207
  4. CARBOPLATIN [Suspect]
     Active Substance: CARBOPLATIN
     Dosage: 190 MG, WEEKLY
     Route: 042
     Dates: start: 20220425, end: 20220425
  5. PACLITAXEL [Suspect]
     Active Substance: PACLITAXEL
     Indication: HIV infection
     Dosage: 450 MG, DAYS 1,2,3 WEEKLY CYCLE
     Route: 048
     Dates: start: 20220107, end: 20220427
  6. ENCEQUIDAR MESYLATE MONOHYDRATE [Suspect]
     Active Substance: ENCEQUIDAR MESYLATE MONOHYDRATE
     Dosage: 15 MG, DAYS 1,2,3 WEEKLY CYCLE
     Route: 048
     Dates: start: 20220207, end: 20220427
  7. ASPIRIN [Concomitant]
     Active Substance: ASPIRIN
     Indication: Myocardial infarction
     Dosage: 81 MG, QD
     Route: 048
     Dates: start: 201308
  8. B COMPLEX VITAMIN (B1/B2/B12/NIACIN) [Concomitant]
     Indication: Prophylaxis
     Dosage: 1 TABLET, QD
     Route: 048
     Dates: start: 202101
  9. BUPROPION HYDROCHLORIDE [Concomitant]
     Active Substance: BUPROPION HYDROCHLORIDE
     Indication: Anxiety
     Dosage: 150 MG, BID
     Route: 048
     Dates: start: 2018
  10. CALTRATE (CALCIUM CARBONATE + VITAMIN D3) [Concomitant]
     Indication: Prophylaxis
     Dosage: 1200 MG, QD
     Route: 048
     Dates: start: 1990
  11. CLINDAMYCIN [Concomitant]
     Active Substance: CLINDAMYCIN
     Indication: Rash maculo-papular
     Dosage: APPLY TOPICALLY TWO TIMES DAILY
  12. DIAZEPAM [Concomitant]
     Active Substance: DIAZEPAM
     Indication: Anxiety
     Dosage: 5 MG, BID
     Route: 048
     Dates: start: 2015
  13. LORATIDINE GALPHARM [Concomitant]
     Indication: Rhinitis allergic
     Dosage: 10 MG, QD
     Route: 048
  14. POTASSIUM CHLORIDE [Concomitant]
     Active Substance: POTASSIUM CHLORIDE
     Indication: Hypokalaemia
     Dosage: 20 MEQ, BID
     Route: 048
     Dates: start: 20220228, end: 20220228
  15. POTASSIUM CHLORIDE [Concomitant]
     Active Substance: POTASSIUM CHLORIDE
     Dosage: 20 MEQ, BID
     Route: 042
     Dates: start: 20220307, end: 20220307
  16. METOPROLOL SUCCINATE [Concomitant]
     Active Substance: METOPROLOL SUCCINATE
     Dosage: 50 MG
  17. ROSUVASTATIN [Concomitant]
     Active Substance: ROSUVASTATIN
     Indication: Hyperlipidaemia
     Dosage: 40 MG, QD
     Route: 048
     Dates: start: 20220127

REACTIONS (1)
  - Hypophysitis [Recovered/Resolved with Sequelae]

NARRATIVE: CASE EVENT DATE: 20220511
